FAERS Safety Report 8761010 (Version 1)
Quarter: 2012Q4

REPORT INFORMATION
  Report Type: Report from Study
  Country: FR (occurrence: FR)
  Receive Date: 20120830
  Receipt Date: 20120830
  Transmission Date: 20130627
  Serious: Yes (Other)
  Sender: FDA-Public Use
  Company Number: FR-GENZYME-CLOF-1002270

PATIENT
  Age: 54 None
  Sex: Female
  Weight: 70 kg

DRUGS (6)
  1. EVOLTRA [Suspect]
     Indication: ACUTE MYELOID LEUKAEMIA
     Dosage: UNK
     Route: 065
     Dates: start: 20110913
  2. EVOLTRA [Suspect]
     Dosage: 51 mg, qd
     Route: 065
     Dates: start: 20111030, end: 20111103
  3. CYTARABINE [Suspect]
     Indication: ACUTE MYELOID LEUKAEMIA
     Dosage: 1700 mg, qd
     Route: 065
     Dates: start: 20111029, end: 20111102
  4. CYTARABINE [Suspect]
     Dosage: UNK
     Route: 065
     Dates: start: 20110913
  5. AZANTAC [Concomitant]
     Indication: PRODUCT USED FOR UNKNOWN INDICATION
     Dosage: 150 mg, qd
     Route: 065
  6. ZARZIO [Concomitant]
     Indication: PRODUCT USED FOR UNKNOWN INDICATION
     Dosage: 1 DF, qd
     Route: 065
     Dates: start: 20111029, end: 20111103

REACTIONS (10)
  - Cholestasis [Unknown]
  - Febrile bone marrow aplasia [Recovered/Resolved]
  - Hepatitis [Recovered/Resolved]
  - Bacterial sepsis [Recovered/Resolved]
  - Staphylococcal infection [Unknown]
  - Streptococcal infection [Unknown]
  - Drug eruption [Not Recovered/Not Resolved]
  - Pruritus [Not Recovered/Not Resolved]
  - Vomiting [Unknown]
  - Nausea [Recovered/Resolved]
